FAERS Safety Report 18043606 (Version 1)
Quarter: 2020Q3

REPORT INFORMATION
  Report Type: Spontaneous
  Country: CN (occurrence: CN)
  Receive Date: 20200720
  Receipt Date: 20200720
  Transmission Date: 20201103
  Serious: Yes (Hospitalization)
  Sender: FDA-Public Use
  Company Number: CN-ROCHE-2644296

PATIENT
  Age: 55 Year
  Sex: Female
  Weight: 50 kg

DRUGS (3)
  1. CARBOPLATIN. [Suspect]
     Active Substance: CARBOPLATIN
     Indication: BREAST CANCER
     Route: 041
     Dates: start: 20200531
  2. DOCETAXEL. [Suspect]
     Active Substance: DOCETAXEL
     Indication: BREAST CANCER
     Route: 041
     Dates: start: 20200531
  3. HERCEPTIN [Suspect]
     Active Substance: TRASTUZUMAB
     Indication: BREAST CANCER
     Route: 041
     Dates: start: 20200531

REACTIONS (1)
  - Platelet count decreased [Recovering/Resolving]

NARRATIVE: CASE EVENT DATE: 20200620
